FAERS Safety Report 9452282 (Version 3)
Quarter: 2013Q3

REPORT INFORMATION
  Report Type: Spontaneous
  Country: AR (occurrence: AR)
  Receive Date: 20130812
  Receipt Date: 20130926
  Transmission Date: 20140515
  Serious: Yes (Hospitalization)
  Sender: FDA-Public Use
  Company Number: AR-AMGEN-ARGSP2013056137

PATIENT
  Age: 70 Year
  Sex: Female

DRUGS (5)
  1. ENBREL [Suspect]
     Indication: RHEUMATOID ARTHRITIS
     Dosage: 50 MG, WEEKLY
     Route: 058
     Dates: start: 20100430
  2. OXA                                /00372304/ [Concomitant]
     Dosage: 75 MG, UNK
     Route: 048
  3. LEFLUNOMIDE [Concomitant]
     Dosage: UNK
  4. OXA 75 RAPILENT [Concomitant]
     Dosage: 75 MG, UNK
     Route: 048
  5. FILARTROS [Concomitant]
     Dosage: UNK

REACTIONS (2)
  - Femur fracture [Recovered/Resolved]
  - Hip fracture [Recovered/Resolved]
